FAERS Safety Report 4310367-0 (Version None)
Quarter: 2004Q1

REPORT INFORMATION
  Report Type: 
  Country: None (occurrence: None)
  Receive Date: 20040302
  Receipt Date: 20040213
  Transmission Date: 20041129
  Serious: Yes (Hospitalization)
  Sender: FDA-Public Use
  Company Number: F01200400282

PATIENT
  Age: 62 Year
  Sex: Male

DRUGS (1)
  1. ALFUZOSIN [Suspect]
     Indication: BENIGN PROSTATIC HYPERPLASIA
     Dosage: 10 MG OD
     Route: 048
     Dates: start: 20030814, end: 20031101

REACTIONS (2)
  - REFUSAL OF TREATMENT BY PATIENT [None]
  - TRANSURETHRAL PROSTATECTOMY [None]
